FAERS Safety Report 6924356-0 (Version None)
Quarter: 2010Q3

REPORT INFORMATION
  Report Type: 
  Country: None (occurrence: None)
  Receive Date: 20100811
  Receipt Date: 20100811
  Transmission Date: 20110219
  Serious: Yes (Other)
  Sender: FDA-Public Use
  Company Number: None

PATIENT
  Sex: Male
  Weight: 93.8946 kg

DRUGS (3)
  1. CEFZIL [Suspect]
     Indication: SINUSITIS
     Dosage: 250 MG PO BID X 10 D
     Dates: start: 20080303, end: 20080305
  2. MUCINEX D [Concomitant]
  3. SALINE NASAL SPRAY [Concomitant]

REACTIONS (4)
  - INFECTIOUS MONONUCLEOSIS [None]
  - RASH ERYTHEMATOUS [None]
  - RASH GENERALISED [None]
  - RASH PRURITIC [None]
